FAERS Safety Report 16162423 (Version 1)
Quarter: 2019Q2

REPORT INFORMATION
  Report Type: Spontaneous
  Country: US (occurrence: US)
  Receive Date: 20190301
  Receipt Date: 20190301
  Transmission Date: 20190711
  Serious: Yes (Life-Threatening, Hospitalization, Disabling)
  Sender: FDA-Public Use
  Company Number: None

PATIENT
  Age: 72 Year
  Sex: Female
  Weight: 45.36 kg

DRUGS (14)
  1. VITAMIN B12 [Concomitant]
     Active Substance: CYANOCOBALAMIN
  2. VITAMIN D3 [Concomitant]
     Active Substance: CHOLECALCIFEROL
  3. NEXIUM 20 MG [Concomitant]
  4. IRBESARTAN GENERIC FOR AUAPRO [Suspect]
     Active Substance: IRBESARTAN
     Indication: HYPERTENSION
     Dosage: ?          QUANTITY:1 PILL;?
     Route: 048
     Dates: start: 20090320, end: 20180807
  5. IBROTINIB 140 MG [Concomitant]
  6. CREON/PANCRELIPASE 24000 UNITS [Concomitant]
  7. LEVOTHYROXINE/SYNTHYROID 100 MCG [Concomitant]
  8. METOCLOPRAMIDE/REGLAN 5MG [Concomitant]
  9. ZOLOFT/SERTRALINE 25MG [Concomitant]
  10. INTERMEZZO/ZOLPIDEMTARTATE 3.5MG [Concomitant]
  11. EVESPI INHALER [Concomitant]
  12. METOPROLOL/LOPRESSOR 50MG [Concomitant]
  13. ALLOPURINOL/ ZYLOPRIM 300MG [Concomitant]
  14. SAMNSCA (TOLVAPTAN) [Concomitant]

REACTIONS (2)
  - Chronic lymphocytic leukaemia [None]
  - Non-Hodgkin^s lymphoma [None]

NARRATIVE: CASE EVENT DATE: 20180406
